FAERS Safety Report 6534193-7 (Version None)
Quarter: 2010Q1

REPORT INFORMATION
  Report Type: 
  Country: None (occurrence: None)
  Receive Date: 20100112
  Receipt Date: 20100104
  Transmission Date: 20100710
  Serious: Yes (Other)
  Sender: FDA-Public Use
  Company Number: US-TEVA-220204USA

PATIENT

DRUGS (1)
  1. NOREPINEPHRINE BITARTRATE 1 MG BASE/ML [Suspect]

REACTIONS (1)
  - VENTRICULAR TACHYCARDIA [None]
